FAERS Safety Report 6045557-2 (Version None)
Quarter: 2009Q1

REPORT INFORMATION
  Report Type: 
  Country: None (occurrence: None)
  Receive Date: 20090121
  Receipt Date: 20090109
  Transmission Date: 20090719
  Serious: Yes (Death)
  Sender: FDA-Public Use
  Company Number: NL-AVENTIS-200910576GDDC

PATIENT

DRUGS (2)
  1. APIDRA [Suspect]
  2. AUTOPEN INSULIN INJECTION PEN [Suspect]

REACTIONS (3)
  - COMPLETED SUICIDE [None]
  - HYPOGLYCAEMIA [None]
  - INTENTIONAL OVERDOSE [None]
